FAERS Safety Report 13994216 (Version 1)
Quarter: 2017Q3

REPORT INFORMATION
  Report Type: Spontaneous
  Country: US (occurrence: US)
  Receive Date: 20170920
  Receipt Date: 20170920
  Transmission Date: 20171128
  Serious: Yes (Hospitalization, Other)
  Sender: FDA-Public Use
  Company Number: None

PATIENT
  Age: 34 Year
  Sex: Female
  Weight: 58.5 kg

DRUGS (8)
  1. DOXEPIN [Concomitant]
     Active Substance: DOXEPIN
  2. LYRICA [Suspect]
     Active Substance: PREGABALIN
     Indication: FIBROMYALGIA
     Dosage: ?          QUANTITY:1 CAPSULE(S);?TWICE A DAY ORAL
     Route: 048
     Dates: start: 20170203, end: 20170905
  3. CLONIDINE. [Concomitant]
     Active Substance: CLONIDINE
  4. ALPRAZOLAM. [Concomitant]
     Active Substance: ALPRAZOLAM
  5. DEPAKOTE [Concomitant]
     Active Substance: DIVALPROEX SODIUM
  6. LYRICA [Suspect]
     Active Substance: PREGABALIN
     Indication: NEURALGIA
     Dosage: ?          QUANTITY:1 CAPSULE(S);?TWICE A DAY ORAL
     Route: 048
     Dates: start: 20170203, end: 20170905
  7. LYRICA [Suspect]
     Active Substance: PREGABALIN
     Indication: ARTHRITIS
     Dosage: ?          QUANTITY:1 CAPSULE(S);?TWICE A DAY ORAL
     Route: 048
     Dates: start: 20170203, end: 20170905
  8. SUBOXONE [Concomitant]
     Active Substance: BUPRENORPHINE HYDROCHLORIDE\NALOXONE HYDROCHLORIDE

REACTIONS (6)
  - Vision blurred [None]
  - Dizziness postural [None]
  - Dry mouth [None]
  - Disturbance in attention [None]
  - Dizziness [None]
  - Weight increased [None]

NARRATIVE: CASE EVENT DATE: 20170802
